FAERS Safety Report 10469980 (Version 1)
Quarter: 2014Q3

REPORT INFORMATION
  Report Type: Spontaneous
  Country: US (occurrence: None)
  Receive Date: 20140922
  Receipt Date: 20140922
  Transmission Date: 20150326
  Serious: Yes (Other)
  Sender: FDA-Public Use
  Company Number: None

PATIENT
  Age: 62 Year
  Sex: Male
  Weight: 72.3 kg

DRUGS (3)
  1. ASPIRIN. [Concomitant]
     Active Substance: ASPIRIN
  2. DASATINIB [Suspect]
     Active Substance: DASATINIB
     Indication: HODGKIN^S DISEASE
     Route: 048
     Dates: start: 20140609
  3. ACYCLOVIR. [Concomitant]
     Active Substance: ACYCLOVIR

REACTIONS (3)
  - Macular oedema [None]
  - Retinal artery occlusion [None]
  - Retinal vein occlusion [None]

NARRATIVE: CASE EVENT DATE: 20140913
